FAERS Safety Report 20909099 (Version 1)
Quarter: 2022Q2

REPORT INFORMATION
  Report Type: Spontaneous
  Country: CN (occurrence: None)
  Receive Date: 20220603
  Receipt Date: 20220603
  Transmission Date: 20220721
  Serious: Yes (Hospitalization)
  Sender: FDA-Public Use
  Company Number: 2022A202580

PATIENT
  Age: 19109 Day
  Sex: Female

DRUGS (2)
  1. OSIMERTINIB MESYLATE [Suspect]
     Active Substance: OSIMERTINIB MESYLATE
     Indication: Lung adenocarcinoma stage IV
     Route: 048
     Dates: start: 20220430, end: 20220529
  2. VINORELBINE TARTRATE [Suspect]
     Active Substance: VINORELBINE TARTRATE
     Indication: Lung adenocarcinoma stage IV
     Route: 048
     Dates: start: 20220430, end: 20220507

REACTIONS (1)
  - Granulocyte count decreased [Recovering/Resolving]

NARRATIVE: CASE EVENT DATE: 20220520
